FAERS Safety Report 8380607-X (Version None)
Quarter: 2012Q2

REPORT INFORMATION
  Report Type: 
  Country: None (occurrence: None)
  Receive Date: 20120523
  Receipt Date: 20120516
  Transmission Date: 20120825
  Serious: Yes (Other)
  Sender: FDA-Public Use
  Company Number: US-ROCHE-1032812

PATIENT
  Sex: Female
  Weight: 52.21 kg

DRUGS (2)
  1. ACCUTANE [Suspect]
     Indication: ACNE
     Route: 048
     Dates: start: 19840709, end: 19841210
  2. ACCUTANE [Suspect]
     Dates: end: 19850101

REACTIONS (7)
  - IRRITABLE BOWEL SYNDROME [None]
  - BLOOD CHOLESTEROL DECREASED [None]
  - DEPRESSION [None]
  - INTESTINAL OBSTRUCTION [None]
  - COLONIC POLYP [None]
  - INTESTINAL HAEMORRHAGE [None]
  - COLITIS [None]
